FAERS Safety Report 8101203-5 (Version None)
Quarter: 2012Q1

REPORT INFORMATION
  Report Type: 
  Country: None (occurrence: None)
  Receive Date: 20120129
  Receipt Date: 20111013
  Transmission Date: 20120608
  Serious: No
  Sender: FDA-Public Use
  Company Number: US-ABBOTT-11P-163-0863880-00

PATIENT
  Age: 49 Year
  Sex: Female

DRUGS (7)
  1. CALCIUM+MAGNESIUM [Concomitant]
     Indication: PRODUCT USED FOR UNKNOWN INDICATION
     Dosage: 1000/50MG
  2. HUMIRA [Suspect]
     Indication: ANKYLOSING SPONDYLITIS
     Dates: start: 20110907
  3. MIGRANAL [Concomitant]
     Indication: PRODUCT USED FOR UNKNOWN INDICATION
  4. TORADOL [Concomitant]
     Indication: PAIN
     Dosage: MIGRAINE
  5. FISH OIL [Concomitant]
     Indication: PRODUCT USED FOR UNKNOWN INDICATION
  6. NAPROXEN (ALEVE) [Concomitant]
     Indication: PRODUCT USED FOR UNKNOWN INDICATION
     Dosage: 3-4 TIMES A WEEK
  7. VITAMIN D [Concomitant]
     Indication: PRODUCT USED FOR UNKNOWN INDICATION
     Dosage: PER DAY

REACTIONS (3)
  - ANXIETY [None]
  - INSOMNIA [None]
  - PAIN [None]
